FAERS Safety Report 7053398-2 (Version None)
Quarter: 2010Q4

REPORT INFORMATION
  Report Type: 
  Country: None (occurrence: None)
  Receive Date: 20101020
  Receipt Date: 20101013
  Transmission Date: 20110411
  Serious: Yes (Life-Threatening, Hospitalization)
  Sender: FDA-Public Use
  Company Number: FR-GENZYME-THYR-1000362

PATIENT

DRUGS (3)
  1. THYROGEN [Suspect]
     Indication: THYROID CANCER
     Dosage: 1 VIAL
     Route: 030
     Dates: start: 20100911, end: 20100911
  2. NORDETTE-21 [Suspect]
     Indication: CONTRACEPTION
     Dosage: UNK UNK, UNK
     Route: 048
     Dates: start: 20100101, end: 20100911
  3. LEVOTHYROXINE SODIUM [Concomitant]
     Indication: HORMONE REPLACEMENT THERAPY
     Dosage: UNK UNK, UNK
     Route: 048
     Dates: start: 20100101

REACTIONS (1)
  - CEREBROVASCULAR ACCIDENT [None]
